FAERS Safety Report 5757294-X (Version None)
Quarter: 2008Q2

REPORT INFORMATION
  Report Type: 
  Country: None (occurrence: None)
  Receive Date: 20080603
  Receipt Date: 20080508
  Transmission Date: 20081010
  Serious: Yes (Other)
  Sender: FDA-Public Use
  Company Number: US-BAYER-200811801BCC

PATIENT
  Age: 76 Year
  Sex: Female
  Weight: 70 kg

DRUGS (18)
  1. ASPIRIN [Suspect]
     Indication: ARTHRALGIA
     Dosage: TOTAL DAILY DOSE: 325 MG  UNIT DOSE: 325 MG
     Route: 048
     Dates: end: 20080303
  2. ALEVE [Suspect]
     Indication: ARTHRALGIA
     Dosage: TOTAL DAILY DOSE: 220 MG  UNIT DOSE: 220 MG
     Route: 048
     Dates: start: 20080503, end: 20080507
  3. FERROUS GLUCONATE (UNKNOWN BRAND) [Suspect]
     Indication: MINERAL SUPPLEMENTATION
     Dosage: TOTAL DAILY DOSE: 324 MG  UNIT DOSE: 324 MG
     Route: 048
     Dates: end: 20080303
  4. FERROUS GLUCONATE (UNKNOWN BRAND) [Suspect]
     Dosage: TOTAL DAILY DOSE: 324 MG  UNIT DOSE: 324 MG
     Route: 048
     Dates: start: 20080503, end: 20080507
  5. XANAX [Concomitant]
  6. AMOXAPINE [Concomitant]
  7. MACROBID [Concomitant]
  8. HYZAAR [Concomitant]
  9. GLUCOPHAGE [Concomitant]
  10. PLENDIL [Concomitant]
  11. POTASSIUM CHLORIDE [Concomitant]
  12. CRANBERRY FRUIT CAPSULES [Concomitant]
  13. CENTRUM MULTIVITAMIN [Concomitant]
  14. VITAMIN D [Concomitant]
  15. VITAMIN B COMPLEX CAP [Concomitant]
  16. CARDIO COMPLETE [Concomitant]
  17. TUMS [Concomitant]
  18. PRILOSEC [Concomitant]

REACTIONS (3)
  - CONSTIPATION [None]
  - HAEMORRHOIDS [None]
  - RECTAL HAEMORRHAGE [None]
